FAERS Safety Report 13296264 (Version 1)
Quarter: 2017Q1

REPORT INFORMATION
  Report Type: Report from Study
  Country: None (occurrence: NL)
  Receive Date: 20170304
  Receipt Date: 20170304
  Transmission Date: 20170428
  Serious: Yes (Hospitalization)
  Sender: FDA-Public Use
  Company Number: NL-ABBVIE-17P-114-1880864-00

PATIENT
  Age: 77 Year
  Sex: Male

DRUGS (3)
  1. DUODOPA [Suspect]
     Active Substance: CARBIDOPA\LEVODOPA
     Indication: PARKINSON^S DISEASE
     Dosage: MORNING DOSE: 9.6, CONTINUOUS DOSE: 1.4, EXTRA DOSE: 1.0
     Route: 050
     Dates: start: 20160613
  2. DUODOPA [Suspect]
     Active Substance: CARBIDOPA\LEVODOPA
     Dosage: MORNING DOSE: 9.6, CONTINUOUS DOSE: 1.4, EXTRA DOSE: 1.0
     Route: 050
  3. DUODOPA [Suspect]
     Active Substance: CARBIDOPA\LEVODOPA
     Dosage: MORNING DOSE: 17.6 CONTINUOUS DOSE: 1.3 EXTRA DOSE: 1.0
     Route: 050

REACTIONS (7)
  - Muscle rigidity [Recovering/Resolving]
  - Stoma site erythema [Not Recovered/Not Resolved]
  - Stoma site reaction [Not Recovered/Not Resolved]
  - Underdose [Recovered/Resolved]
  - Tremor [Not Recovered/Not Resolved]
  - Tremor [Recovered/Resolved]
  - On and off phenomenon [Recovered/Resolved]

NARRATIVE: CASE EVENT DATE: 20170210
